FAERS Safety Report 10478704 (Version 2)
Quarter: 2014Q4

REPORT INFORMATION
  Report Type: Spontaneous
  Country: US (occurrence: None)
  Receive Date: 20140924
  Receipt Date: 20141006
  Transmission Date: 20150528
  Serious: Yes (Other)
  Sender: FDA-Public Use
  Company Number: US-H14001-14-00702

PATIENT
  Sex: Male

DRUGS (1)
  1. PREDNISONE (PREDNISONE) (5 MILLIGRAM, TABLETS) (PREDNISONE) [Suspect]
     Active Substance: PREDNISONE
     Indication: BRAIN NEOPLASM
     Dosage: 5MG EVERY MORNING AROUND 8, FOR PAST 8 MONTHS

REACTIONS (6)
  - Dizziness [None]
  - Product quality issue [None]
  - Impaired driving ability [None]
  - Eye pain [None]
  - Loss of consciousness [None]
  - Headache [None]

NARRATIVE: CASE EVENT DATE: 201408
